FAERS Safety Report 12902971 (Version 1)
Quarter: 2016Q4

REPORT INFORMATION
  Report Type: Spontaneous
  Country: US (occurrence: US)
  Receive Date: 20161102
  Receipt Date: 20161102
  Transmission Date: 20170207
  Serious: No
  Sender: FDA-Public Use
  Company Number: US-JNJFOC-20161022174

PATIENT
  Age: 89 Year
  Sex: Male
  Weight: 51.71 kg

DRUGS (2)
  1. IMODIUM A-D [Suspect]
     Active Substance: LOPERAMIDE HYDROCHLORIDE
     Route: 048
  2. IMODIUM A-D [Suspect]
     Active Substance: LOPERAMIDE HYDROCHLORIDE
     Indication: DIARRHOEA
     Dosage: DOSE: 3 TEASPOONS TAKEN LAST NIGHT (FROM THE TIME OF THIS REPORT).
     Route: 048
     Dates: start: 20161023

REACTIONS (2)
  - Product label issue [Unknown]
  - Medication error [Unknown]

NARRATIVE: CASE EVENT DATE: 20161023
